FAERS Safety Report 19889388 (Version 3)
Quarter: 2021Q4

REPORT INFORMATION
  Report Type: Spontaneous
  Country: US (occurrence: US)
  Receive Date: 20210928
  Receipt Date: 20211105
  Transmission Date: 20220303
  Serious: Yes (Other)
  Sender: FDA-Public Use
  Company Number: US-JNJFOC-20210940963

PATIENT
  Age: 50 Year
  Sex: Female

DRUGS (4)
  1. NEUTROGENA ULTRA SHEER BODY MIST SUNSCRN BR?D SPECT SPF 45 (AVO\HOM\OC [Suspect]
     Active Substance: AVOBENZONE\HOMOSALATE\OCTISALATE\OCTOCRYLENE\OXYBENZONE
     Indication: Product used for unknown indication
     Route: 061
  2. NEUTROGENA OTC NOS [Suspect]
     Active Substance: AVOBENZONE\HOMOSALATE\OCTISALATE\OCTOCRYLENE\OXYBENZONE OR BENZOYL PEROXIDE OR COAL TAR OR SALICYLIC
     Indication: Product used for unknown indication
     Dosage: AT LEAST 3 TIMES A DAY WHEN OUTSIDE
     Route: 061
  3. CELOXIB [Concomitant]
     Indication: Muscle spasms
     Route: 065
     Dates: start: 2018
  4. ZOLOFT [Concomitant]
     Active Substance: SERTRALINE HYDROCHLORIDE
     Indication: Anxiety
     Route: 065
     Dates: start: 2018

REACTIONS (3)
  - Malignant melanoma [Recovering/Resolving]
  - Precancerous cells present [Recovering/Resolving]
  - Application site scar [Recovering/Resolving]

NARRATIVE: CASE EVENT DATE: 20190110
